FAERS Safety Report 15798551 (Version 6)
Quarter: 2019Q2

REPORT INFORMATION
  Report Type: Report from Study
  Country: ZA (occurrence: ZA)
  Receive Date: 20190108
  Receipt Date: 20190617
  Transmission Date: 20190711
  Serious: Yes (Hospitalization, Other)
  Sender: FDA-Public Use
  Company Number: ZA-SA-2019SA003126

PATIENT
  Age: 60 Year
  Sex: Female

DRUGS (6)
  1. TARGINACT [Concomitant]
     Active Substance: NALOXONE HYDROCHLORIDE\OXYCODONE HYDROCHLORIDE
     Dosage: 5 MG, BID
     Dates: start: 20180928
  2. STILNOX [Concomitant]
     Active Substance: ZOLPIDEM TARTRATE
     Dosage: 10 MG, HS
     Dates: start: 20180928
  3. INSULIN GLARGINE [Suspect]
     Active Substance: INSULIN GLARGINE
     Dosage: AT BED TIME-10 U, HS
     Dates: start: 20180928
  4. ASPAVOR [Concomitant]
     Active Substance: ATORVASTATIN
     Dosage: BT-10 MG
     Dates: start: 19880201
  5. JANUMET [Concomitant]
     Active Substance: METFORMIN HYDROCHLORIDE\SITAGLIPTIN PHOSPHATE
     Dosage: AB-50 MG (AFTER BREAKFAST AND AFTER SUPPER)
     Dates: start: 20180928
  6. DIAGLUCIDE [Concomitant]
     Active Substance: GLICLAZIDE
     Dosage: BB-60 MG (BEFORE BREAKFAST)
     Dates: start: 20180928

REACTIONS (13)
  - Diarrhoea [Not Recovered/Not Resolved]
  - Choking [Recovered/Resolved]
  - Condition aggravated [Not Recovered/Not Resolved]
  - Localised infection [Unknown]
  - Chest discomfort [Not Recovered/Not Resolved]
  - Pulmonary oedema [Unknown]
  - Gastritis [Unknown]
  - Dyspnoea [Unknown]
  - Decubitus ulcer [Not Recovered/Not Resolved]
  - Cardiac disorder [Unknown]
  - Dehydration [Not Recovered/Not Resolved]
  - Upper-airway cough syndrome [Not Recovered/Not Resolved]
  - Cough [Recovered/Resolved]

NARRATIVE: CASE EVENT DATE: 20190220
